FAERS Safety Report 11052037 (Version 3)
Quarter: 2015Q2

REPORT INFORMATION
  Report Type: Report from Study
  Country: US (occurrence: US)
  Receive Date: 20150421
  Receipt Date: 20150608
  Transmission Date: 20150821
  Serious: Yes (Hospitalization)
  Sender: FDA-Public Use
  Company Number: US-VERTEX PHARMACEUTICALS-2015-001198

PATIENT
  Age: 23 Year
  Sex: Male

DRUGS (1)
  1. KALYDECO [Suspect]
     Active Substance: IVACAFTOR
     Indication: CYSTIC FIBROSIS
     Dosage: UNK
     Route: 048
     Dates: start: 20120211

REACTIONS (7)
  - Pneumonia [Unknown]
  - Dysphagia [Recovered/Resolved]
  - Oropharyngeal pain [Recovered/Resolved]
  - Oral candidiasis [Recovered/Resolved]
  - Pyrexia [Unknown]
  - Fatigue [Unknown]
  - Asthenia [Unknown]

NARRATIVE: CASE EVENT DATE: 20150414
